FAERS Safety Report 9827949 (Version 1)
Quarter: 2014Q1

REPORT INFORMATION
  Report Type: Spontaneous
  Country: US (occurrence: US)
  Receive Date: 20140117
  Receipt Date: 20140117
  Transmission Date: 20141002
  Serious: Yes (Other)
  Sender: FDA-Public Use
  Company Number: 2014SP000093

PATIENT
  Sex: Female

DRUGS (3)
  1. LUNESTA [Suspect]
     Indication: INSOMNIA
     Route: 048
     Dates: end: 201401
  2. LUNESTA [Suspect]
     Indication: INSOMNIA
     Route: 048
  3. LUNESTA [Suspect]
     Indication: INSOMNIA
     Route: 048

REACTIONS (1)
  - Cardiac valve disease [Unknown]
